FAERS Safety Report 15555090 (Version 1)
Quarter: 2018Q4

REPORT INFORMATION
  Report Type: Spontaneous
  Country: US (occurrence: US)
  Receive Date: 20181026
  Receipt Date: 20181026
  Transmission Date: 20190205
  Serious: No
  Sender: FDA-Public Use
  Company Number: US-MYLANLABS-2018M1066211

PATIENT
  Sex: Male

DRUGS (3)
  1. LITHIUM CARBONATE EXTENDED-RELEASE TABLETS, USP [Suspect]
     Active Substance: LITHIUM CARBONATE
     Dosage: UNK
  2. LITHIUM CARBONATE EXTENDED-RELEASE TABLETS, USP [Suspect]
     Active Substance: LITHIUM CARBONATE
     Indication: PRODUCT USED FOR UNKNOWN INDICATION
     Dosage: UNK
     Dates: start: 2003
  3. LITHIUM CARBONATE EXTENDED-RELEASE TABLETS, USP [Suspect]
     Active Substance: LITHIUM CARBONATE
     Dosage: 2 DF, BID
     Route: 048

REACTIONS (5)
  - Product odour abnormal [Unknown]
  - Product physical issue [Unknown]
  - Adverse event [Unknown]
  - Product quality issue [Unknown]
  - Product colour issue [Unknown]
